FAERS Safety Report 7148044-3 (Version None)
Quarter: 2010Q4

REPORT INFORMATION
  Report Type: 
  Country: None (occurrence: None)
  Receive Date: 20101206
  Receipt Date: 20101206
  Transmission Date: 20110411
  Serious: Yes (Other)
  Sender: FDA-Public Use
  Company Number: None

PATIENT
  Age: 8 Year
  Sex: Female
  Weight: 29.9374 kg

DRUGS (1)
  1. SINGULAIR [Suspect]
     Indication: ASTHMA
     Dosage: 5MG DAILY PO
     Route: 048
     Dates: start: 20101006, end: 20101101

REACTIONS (3)
  - AGGRESSION [None]
  - AGITATION [None]
  - NIGHTMARE [None]
